FAERS Safety Report 9491355 (Version 2)
Quarter: 2013Q3

REPORT INFORMATION
  Report Type: Spontaneous
  Country: CA (occurrence: CA)
  Receive Date: 20130830
  Receipt Date: 20130830
  Transmission Date: 20140515
  Serious: Yes (Other)
  Sender: FDA-Public Use
  Company Number: CA-ELI_LILLY_AND_COMPANY-CA201305002096

PATIENT
  Age: 84 Year
  Sex: Male
  Weight: 96 kg

DRUGS (14)
  1. CYMBALTA [Suspect]
     Indication: DEPRESSION
     Dosage: 1 DF, QD
     Route: 048
     Dates: start: 20121120
  2. CIPRO /00697201/ [Interacting]
     Indication: URINARY TRACT INFECTION
     Dosage: 1000 MG, BID
     Route: 048
     Dates: start: 20121203, end: 20121205
  3. ACETAMINOPHEN [Concomitant]
     Dosage: 500 MG, EVERY 6 HRS
     Route: 048
  4. ASPIRIN [Concomitant]
     Dosage: 81 MG, QD
     Route: 048
  5. DOCUSATE [Concomitant]
     Dosage: 100 MG, QD
     Route: 048
  6. ENALAPRIL [Concomitant]
     Dosage: 5 MG, QD
     Route: 048
  7. HYDROCHLOROTHIAZIDE [Concomitant]
     Dosage: UNK, UNKNOWN
     Route: 048
  8. LORAZEPAM [Concomitant]
     Dosage: 1 MG, BID
     Route: 048
  9. MORPHINE SULFATE [Concomitant]
     Dosage: 5 MG, EVERY 6 HRS
     Route: 048
  10. PANTOPRAZOLE [Concomitant]
     Dosage: 40 MG, BID
     Route: 048
  11. SALBUTAMOL [Concomitant]
     Dosage: 100 UG, QID
     Route: 048
  12. SENNOSIDES A+B [Concomitant]
     Dosage: 8.6 MG, QD
     Route: 048
  13. TAMSULOSIN [Concomitant]
     Dosage: 0.4 MG, QD
     Route: 048
  14. ZOPICLONE [Concomitant]
     Dosage: 7.5 MG, PRN
     Route: 048

REACTIONS (6)
  - Seizure like phenomena [Recovered/Resolved]
  - Irritability [Recovered/Resolved]
  - Agitation [Recovered/Resolved]
  - Tremor [Recovered/Resolved]
  - Dyskinesia [Recovered/Resolved]
  - Drug interaction [Recovered/Resolved]
